FAERS Safety Report 6822722-5 (Version None)
Quarter: 2010Q3

REPORT INFORMATION
  Report Type: 
  Country: None (occurrence: None)
  Receive Date: 20100708
  Receipt Date: 20100630
  Transmission Date: 20110219
  Serious: Yes (Hospitalization)
  Sender: FDA-Public Use
  Company Number: DE-PFIZER INC-2010082123

PATIENT
  Age: 72 Year
  Sex: Male

DRUGS (6)
  1. SUNITINIB MALATE [Suspect]
     Indication: METASTATIC RENAL CELL CARCINOMA
     Dosage: 50 MG, 1X/DAY
     Dates: start: 20100109
  2. BISOPROLOL [Concomitant]
     Dosage: UNK
  3. BENAZEPRIL HYDROCHLORIDE [Concomitant]
     Dosage: UNK
  4. COSOPT [Concomitant]
     Dosage: UNK
  5. TRAVATAN [Concomitant]
     Dosage: UNK
  6. PANTOZOL [Concomitant]
     Dosage: UNK

REACTIONS (1)
  - CIRCULATORY COLLAPSE [None]
